FAERS Safety Report 8841226 (Version 1)
Quarter: 2012Q4

REPORT INFORMATION
  Report Type: 
  Country: FR (occurrence: FR)
  Receive Date: 20121015
  Receipt Date: 20121015
  Transmission Date: 20130627
  Serious: Yes (Other)
  Sender: FDA-Public Use
  Company Number: FR-ROCHE-1141315

PATIENT
  Age: 42 Year
  Sex: Male

DRUGS (1)
  1. VEMURAFENIB [Suspect]
     Indication: METASTATIC MALIGNANT MELANOMA
     Dosage: 4 tablets of 240 mg in morning and in the evening
     Route: 048
     Dates: start: 20120709, end: 201208

REACTIONS (5)
  - Leukocytoclastic vasculitis [Recovered/Resolved]
  - Dermatitis acneiform [Recovered/Resolved]
  - Arthralgia [Recovered/Resolved]
  - Nausea [Recovered/Resolved]
  - Asthenia [Recovered/Resolved]
